FAERS Safety Report 16325808 (Version 1)
Quarter: 2019Q2

REPORT INFORMATION
  Report Type: Spontaneous
  Country: FR (occurrence: FR)
  Receive Date: 20190517
  Receipt Date: 20190517
  Transmission Date: 20190711
  Serious: Yes (Other)
  Sender: FDA-Public Use
  Company Number: FR-SA-2019SA135604

PATIENT
  Age: 38 Year
  Sex: Female

DRUGS (2)
  1. DISULONE [Suspect]
     Active Substance: DAPSONE\FERROUS OXALATE
     Indication: LYME DISEASE
     Dosage: 1 DF, QD
  2. RIFADINE [Suspect]
     Active Substance: RIFAMPIN
     Indication: LYME DISEASE
     Dosage: 2 DF, QD

REACTIONS (4)
  - Hypoxia [Unknown]
  - Fatigue [Not Recovered/Not Resolved]
  - Product use in unapproved indication [Unknown]
  - Condition aggravated [Unknown]
